FAERS Safety Report 7009365-8 (Version None)
Quarter: 2010Q3

REPORT INFORMATION
  Report Type: 
  Country: None (occurrence: None)
  Receive Date: 20100923
  Receipt Date: 20100914
  Transmission Date: 20110219
  Serious: Yes (Other)
  Sender: FDA-Public Use
  Company Number: US-WYE-H17508610

PATIENT
  Age: 12 Year
  Sex: Male

DRUGS (6)
  1. ROBITUSSIN COUGH LONG ACTING [Suspect]
     Indication: DRUG ABUSE
     Dosage: UNKNOWN
     Route: 048
  2. OXYCODONE HYDROCHLORIDE [Suspect]
     Indication: DRUG ABUSE
     Dosage: UNKNOWN
     Route: 048
  3. ETHANOL [Suspect]
     Indication: DRUG ABUSE
     Dosage: UNKNOWN
     Route: 048
  4. CANNABIS [Suspect]
     Indication: DRUG ABUSE
     Dosage: UNKNOWN
     Route: 055
  5. CHLORPHENAMINE MALEATE/PARACETAMOL [Suspect]
     Indication: DRUG ABUSE
     Dosage: UNKNOWN
     Route: 048
  6. ANALGESICS [Suspect]
     Indication: DRUG ABUSE
     Dosage: UNKNOWN
     Route: 048

REACTIONS (4)
  - AGGRESSION [None]
  - DRUG ABUSE [None]
  - MOOD ALTERED [None]
  - OVERDOSE [None]
